FAERS Safety Report 6968523-9 (Version None)
Quarter: 2010Q3

REPORT INFORMATION
  Report Type: 
  Country: None (occurrence: None)
  Receive Date: 20100903
  Receipt Date: 20100903
  Transmission Date: 20110219
  Serious: Yes (Other)
  Sender: FDA-Public Use
  Company Number: None

PATIENT
  Age: 73 Year
  Sex: Female
  Weight: 68.0396 kg

DRUGS (1)
  1. PRISTIQ [Suspect]
     Indication: DEPRESSION
     Dosage: ONE TABLET DAILY ORAL
     Route: 048

REACTIONS (3)
  - ARTHRALGIA [None]
  - BURSITIS [None]
  - MUSCULOSKELETAL PAIN [None]
